FAERS Safety Report 4275135-7 (Version None)
Quarter: 2004Q1

REPORT INFORMATION
  Report Type: 
  Country: None (occurrence: None)
  Receive Date: 20040116
  Receipt Date: 20040105
  Transmission Date: 20041129
  Serious: Yes (Life-Threatening)
  Sender: FDA-Public Use
  Company Number: 2004000838

PATIENT
  Age: 76 Year
  Sex: Male

DRUGS (2)
  1. VIAGRA [Suspect]
     Indication: ERECTILE DYSFUNCTION
     Dosage: ORAL
     Route: 048
     Dates: end: 20031211
  2. LANSOPRAZOLE [Concomitant]

REACTIONS (2)
  - ACUTE CORONARY SYNDROME [None]
  - BUNDLE BRANCH BLOCK LEFT [None]
